FAERS Safety Report 9461626 (Version 1)
Quarter: 2013Q3

REPORT INFORMATION
  Report Type: Spontaneous
  Country: US (occurrence: None)
  Receive Date: 20130815
  Receipt Date: 20130815
  Transmission Date: 20140515
  Serious: Yes (Other)
  Sender: FDA-Public Use
  Company Number: None

PATIENT
  Age: 56 Year
  Sex: Female
  Weight: 57.61 kg

DRUGS (2)
  1. ASACOL [Suspect]
     Indication: COLITIS ULCERATIVE
     Route: 048
     Dates: start: 20130301, end: 20130616
  2. SULFASALAZINE [Suspect]

REACTIONS (7)
  - Skin discolouration [None]
  - Poor peripheral circulation [None]
  - Burning sensation [None]
  - Pain in extremity [None]
  - Insomnia [None]
  - Discomfort [None]
  - Hypoaesthesia [None]
